FAERS Safety Report 4360001-9 (Version None)
Quarter: 2004Q2

REPORT INFORMATION
  Report Type: 
  Country: None (occurrence: None)
  Receive Date: 20040513
  Receipt Date: 20040422
  Transmission Date: 20050107
  Serious: Yes (Hospitalization)
  Sender: FDA-Public Use
  Company Number: JP-JNJFOC-20031101195

PATIENT
  Age: 31 Year
  Sex: Female
  Weight: 46 kg

DRUGS (33)
  1. REMICADE (INFLIXIMAB, RECOMBINANT) LYOPHILIZED POWDER [Suspect]
     Indication: ANAL FISTULA
     Dosage: SEE IMAGE
     Route: 041
     Dates: start: 20020715, end: 20020715
  2. REMICADE (INFLIXIMAB, RECOMBINANT) LYOPHILIZED POWDER [Suspect]
     Indication: CROHN'S DISEASE
     Dosage: SEE IMAGE
     Route: 041
     Dates: start: 20020715, end: 20020715
  3. REMICADE (INFLIXIMAB, RECOMBINANT) LYOPHILIZED POWDER [Suspect]
     Indication: ANAL FISTULA
     Dosage: SEE IMAGE
     Route: 041
     Dates: start: 20020809, end: 20020809
  4. REMICADE (INFLIXIMAB, RECOMBINANT) LYOPHILIZED POWDER [Suspect]
     Indication: CROHN'S DISEASE
     Dosage: SEE IMAGE
     Route: 041
     Dates: start: 20020809, end: 20020809
  5. REMICADE (INFLIXIMAB, RECOMBINANT) LYOPHILIZED POWDER [Suspect]
     Indication: ANAL FISTULA
     Dosage: SEE IMAGE
     Route: 041
     Dates: start: 20030521, end: 20030521
  6. REMICADE (INFLIXIMAB, RECOMBINANT) LYOPHILIZED POWDER [Suspect]
     Indication: CROHN'S DISEASE
     Dosage: SEE IMAGE
     Route: 041
     Dates: start: 20030521, end: 20030521
  7. REMICADE (INFLIXIMAB, RECOMBINANT) LYOPHILIZED POWDER [Suspect]
     Indication: ANAL FISTULA
     Dosage: SEE IMAGE
     Route: 041
     Dates: start: 20030604, end: 20030604
  8. REMICADE (INFLIXIMAB, RECOMBINANT) LYOPHILIZED POWDER [Suspect]
     Indication: CROHN'S DISEASE
     Dosage: SEE IMAGE
     Route: 041
     Dates: start: 20030604, end: 20030604
  9. REMICADE (INFLIXIMAB, RECOMBINANT) LYOPHILIZED POWDER [Suspect]
     Indication: ANAL FISTULA
     Dosage: SEE IMAGE
     Route: 041
     Dates: start: 20030627, end: 20030627
  10. REMICADE (INFLIXIMAB, RECOMBINANT) LYOPHILIZED POWDER [Suspect]
     Indication: CROHN'S DISEASE
     Dosage: SEE IMAGE
     Route: 041
     Dates: start: 20030627, end: 20030627
  11. REMICADE (INFLIXIMAB, RECOMBINANT) LYOPHILIZED POWDER [Suspect]
     Indication: ANAL FISTULA
     Dosage: SEE IMAGE
     Route: 041
     Dates: start: 20030809, end: 20030809
  12. REMICADE (INFLIXIMAB, RECOMBINANT) LYOPHILIZED POWDER [Suspect]
     Indication: CROHN'S DISEASE
     Dosage: SEE IMAGE
     Route: 041
     Dates: start: 20030809, end: 20030809
  13. PREDNISOLONE [Suspect]
     Indication: ANAL FISTULA
     Dosage: SEE IMAGE
     Route: 048
     Dates: end: 20030617
  14. PREDNISOLONE [Suspect]
     Indication: CROHN'S DISEASE
     Dosage: SEE IMAGE
     Route: 048
     Dates: end: 20030617
  15. PREDNISOLONE [Suspect]
     Indication: ANAL FISTULA
     Dosage: SEE IMAGE
     Route: 048
     Dates: start: 20030618, end: 20030624
  16. PREDNISOLONE [Suspect]
     Indication: CROHN'S DISEASE
     Dosage: SEE IMAGE
     Route: 048
     Dates: start: 20030618, end: 20030624
  17. PREDNISOLONE [Suspect]
     Indication: ANAL FISTULA
     Dosage: SEE IMAGE
     Route: 048
     Dates: start: 20030625, end: 20030701
  18. PREDNISOLONE [Suspect]
     Indication: CROHN'S DISEASE
     Dosage: SEE IMAGE
     Route: 048
     Dates: start: 20030625, end: 20030701
  19. PREDNISOLONE [Suspect]
     Indication: ANAL FISTULA
     Dosage: SEE IMAGE
     Route: 048
     Dates: start: 20030702, end: 20030708
  20. PREDNISOLONE [Suspect]
     Indication: CROHN'S DISEASE
     Dosage: SEE IMAGE
     Route: 048
     Dates: start: 20030702, end: 20030708
  21. PENTASA (TABLETS) MESALAZINE [Concomitant]
  22. BIO-THREE ( ALL OTHER THERAPEUTIC PRODUCTS) [Concomitant]
  23. LOXONIN (LOXOPROFEN SODIUM) [Concomitant]
  24. SELBEX (TEPRENONE) [Concomitant]
  25. CALCIUM LACTATE    (CALCIUM LACTATE) [Concomitant]
  26. AMITRIPTYLINE HYDROCHLORIDE [Concomitant]
  27. CYTOTEC [Concomitant]
  28. ALFAROL (ALFACALCIDOL) [Concomitant]
  29. MUCOSTA (REBAMIPIDE) [Concomitant]
  30. MEIACT (CEFDITOREN PIVOXIL) [Concomitant]
  31. NITRAZEPAM [Concomitant]
  32. LENDORM [Concomitant]
  33. TORIPUTORU            (ALL OTHER THERAPUTIC PRODUCTS) [Concomitant]

REACTIONS (4)
  - DECREASED APPETITE [None]
  - DISEASE RECURRENCE [None]
  - HEADACHE [None]
  - VARICELLA [None]
